FAERS Safety Report 9247315 (Version 1)
Quarter: 2013Q2

REPORT INFORMATION
  Report Type: Spontaneous
  Country: US (occurrence: US)
  Receive Date: 20130423
  Receipt Date: 20130423
  Transmission Date: 20140414
  Serious: No
  Sender: FDA-Public Use
  Company Number: US-009507513-1304USA009533

PATIENT
  Age: 30 Year
  Sex: Female

DRUGS (4)
  1. SAPHRIS [Suspect]
     Indication: BIPOLAR DISORDER
     Dosage: 5 MG, BID
     Route: 048
     Dates: start: 20111105
  2. LAMICTAL [Concomitant]
     Dosage: 100 MG AT BEDTIME
  3. WELLBUTRIN XL [Concomitant]
     Dosage: 300 MG AT BEDTIME
  4. CELEXA [Concomitant]
     Dosage: 20 MG AT BEDTIME

REACTIONS (1)
  - Diabetes mellitus [Recovered/Resolved]
